FAERS Safety Report 4623472-6 (Version None)
Quarter: 2005Q1

REPORT INFORMATION
  Report Type: 
  Country: None (occurrence: None)
  Receive Date: 20050330
  Receipt Date: 20050315
  Transmission Date: 20050727
  Serious: Yes (Hospitalization)
  Sender: FDA-Public Use
  Company Number: DSA_26119_2005

PATIENT
  Age: 59 Year
  Sex: Male

DRUGS (9)
  1. LORAZEPAM [Suspect]
     Dosage: 18 MG ONCE PO
     Route: 048
     Dates: start: 20050310, end: 20050310
  2. DOLORMIN [Suspect]
     Dosage: 10 TAB ONCE PO
     Route: 048
     Dates: start: 20050310, end: 20050310
  3. LORAZAAR [Suspect]
     Dosage: 2800 MG ONCE PO
     Route: 048
     Dates: start: 20050310, end: 20050310
  4. LORZAAR PLUS [Suspect]
     Dosage: 14 TAB , PO
     Route: 048
     Dates: start: 20050310, end: 20050310
  5. MARCUMAR [Suspect]
     Dosage: 120 MG ONCE PO
     Route: 048
     Dates: start: 20050310, end: 20050310
  6. NITRENDIPINE [Suspect]
     Dosage: 30 TAB QWK PO
     Route: 048
     Dates: start: 20050310, end: 20050310
  7. ALCOHOL [Suspect]
     Dosage: PO
     Route: 048
     Dates: start: 20050310, end: 20050310
  8. ALLOPURINOL [Suspect]
     Dates: start: 20050310, end: 20050310
  9. METOPROLOL SUCCINATE [Suspect]
     Dates: start: 20050310, end: 20050310

REACTIONS (8)
  - ALCOHOL USE [None]
  - DYSARTHRIA [None]
  - HYPOTENSION [None]
  - INTENTIONAL MISUSE [None]
  - PROTHROMBIN TIME PROLONGED [None]
  - PUPILS UNEQUAL [None]
  - RESPIRATORY FAILURE [None]
  - RESTLESSNESS [None]
